FAERS Safety Report 17044909 (Version 1)
Quarter: 2019Q4

REPORT INFORMATION
  Report Type: Spontaneous
  Country: DE (occurrence: DE)
  Receive Date: 20191118
  Receipt Date: 20191118
  Transmission Date: 20200122
  Serious: Yes (Hospitalization, Other)
  Sender: FDA-Public Use
  Company Number: DE-ALK-ABELLO A/S-2076967

PATIENT
  Age: 20 Year
  Sex: Male

DRUGS (1)
  1. GRASTEK [Suspect]
     Active Substance: PHLEUM PRATENSE POLLEN
     Route: 060

REACTIONS (2)
  - Pneumothorax spontaneous [Recovered/Resolved]
  - Surgery [Recovered/Resolved]
